FAERS Safety Report 19740916 (Version 3)
Quarter: 2021Q3

REPORT INFORMATION
  Report Type: Report from Study
  Country: DE (occurrence: DE)
  Receive Date: 20210824
  Receipt Date: 20210916
  Transmission Date: 20211014
  Serious: Yes (Hospitalization)
  Sender: FDA-Public Use
  Company Number: DE-KARYOPHARM-2021KPT001073

PATIENT
  Age: 65 Year
  Sex: Female
  Weight: 82 kg

DRUGS (23)
  1. METFORMIN [Concomitant]
     Active Substance: METFORMIN HYDROCHLORIDE
     Indication: TYPE 2 DIABETES MELLITUS
     Dosage: 1000 MG, QD
     Route: 048
     Dates: start: 2011
  2. MIRTALICH [Concomitant]
     Active Substance: MIRTAZAPINE
     Indication: DEPRESSION
     Dosage: 30 MG, QD
     Route: 048
     Dates: start: 202101
  3. PREGABALIN. [Concomitant]
     Active Substance: PREGABALIN
     Indication: PAIN
  4. DEXAMETHASON ABCUR [Concomitant]
     Active Substance: DEXAMETHASONE
     Dosage: 4 MG, QD
     Route: 048
     Dates: start: 20210722
  5. LIXIANA [Concomitant]
     Active Substance: EDOXABAN TOSYLATE
     Dosage: 60 MG, QD
     Route: 048
     Dates: start: 20210820
  6. OBSTINOL [Concomitant]
     Active Substance: CALCIUM PANTOTHENATE\DANTHRON
     Indication: PROPHYLAXIS
     Dosage: 20 ML, QD
     Route: 048
     Dates: start: 202101
  7. TORASEMID [Concomitant]
     Active Substance: TORSEMIDE
     Indication: PROPHYLAXIS
     Dosage: 5 MG, QD
     Route: 048
     Dates: start: 202105
  8. NOVALGIN [CAFFEINE;PARACETAMOL;PROPYPHENAZONE] [Concomitant]
     Active Substance: ACETAMINOPHEN\CAFFEINE\PROPYPHENAZONE
     Indication: PAIN IN EXTREMITY
     Dosage: 1000 MG, TID
     Route: 048
     Dates: start: 20210803
  9. DEXAMETHASON ABCUR [Concomitant]
     Active Substance: DEXAMETHASONE
     Indication: PROPHYLAXIS
     Dosage: 8 MG, QD
     Route: 048
     Dates: start: 202101, end: 20210721
  10. PLACEBO [Suspect]
     Active Substance: UNSPECIFIED INGREDIENT
     Indication: ENDOMETRIAL CANCER
     Dates: start: 20210721, end: 20210817
  11. BLINDED SELINEXOR [Suspect]
     Active Substance: SELINEXOR
     Indication: ENDOMETRIAL CANCER
     Dates: start: 20210721, end: 20210817
  12. PLACEBO [Suspect]
     Active Substance: UNSPECIFIED INGREDIENT
     Dates: start: 20210908
  13. BLINDED SELINEXOR [Suspect]
     Active Substance: SELINEXOR
     Dates: start: 20210908
  14. NOVAMINSULFON [Concomitant]
     Active Substance: METAMIZOLE
     Indication: ABDOMINAL PAIN
     Dosage: 1000 MG, QID
     Route: 048
     Dates: start: 202105, end: 20210802
  15. FUROBETA [Concomitant]
     Active Substance: FUROSEMIDE
     Indication: PELVIC VENOUS THROMBOSIS
     Dosage: 40 MG, QD
     Route: 048
     Dates: start: 20210727
  16. HYDROMORPHONE [Concomitant]
     Active Substance: HYDROMORPHONE
     Indication: PAIN
     Dosage: 7.09 MG, TID
     Route: 048
     Dates: start: 202105
  17. JANUVIA [Concomitant]
     Active Substance: SITAGLIPTIN PHOSPHATE
     Indication: TYPE 2 DIABETES MELLITUS
     Dosage: 50 MG, BID
     Route: 048
     Dates: start: 202101
  18. HYDROMORPHONE [Concomitant]
     Active Substance: HYDROMORPHONE
     Indication: ABDOMINAL PAIN
     Dosage: 2.31 MG, PRN
     Route: 048
     Dates: start: 202105
  19. PANTOPRAZOLE [Concomitant]
     Active Substance: PANTOPRAZOLE
     Indication: PROPHYLAXIS
     Dosage: 40 MG, QD
     Route: 048
     Dates: start: 202101
  20. LIXIANA [Concomitant]
     Active Substance: EDOXABAN TOSYLATE
     Indication: PELVIC VENOUS THROMBOSIS
     Dosage: 60 MG, QD
     Route: 048
     Dates: start: 20210727, end: 20210816
  21. NOVAMINSULFON [Concomitant]
     Active Substance: METAMIZOLE
     Indication: PAIN
     Dosage: 500 MG, TID
     Route: 048
     Dates: start: 20210803
  22. INNOHEP [Concomitant]
     Active Substance: TINZAPARIN SODIUM
     Indication: PELVIC VENOUS THROMBOSIS
     Dosage: 20000 IU, QD
     Route: 058
     Dates: start: 202101, end: 20210726
  23. PREGABALIN. [Concomitant]
     Active Substance: PREGABALIN
     Indication: ABDOMINAL PAIN
     Dosage: 150 MG, BID
     Route: 048
     Dates: start: 202101

REACTIONS (1)
  - Large intestinal ulcer haemorrhage [Recovered/Resolved]

NARRATIVE: CASE EVENT DATE: 20210817
